FAERS Safety Report 6727200-X (Version None)
Quarter: 2010Q2

REPORT INFORMATION
  Report Type: 
  Country: None (occurrence: None)
  Receive Date: 20100517
  Receipt Date: 20100504
  Transmission Date: 20101027
  Serious: Yes (Other)
  Sender: FDA-Public Use
  Company Number: US-JNJFOC-20100503304

PATIENT
  Age: 2 Year
  Sex: Female
  Weight: 13.61 kg

DRUGS (6)
  1. CHILDREN'S MOTRIN [Suspect]
     Route: 048
  2. CHILDREN'S MOTRIN [Suspect]
     Indication: PYREXIA
     Route: 048
  3. MOTRIN [Suspect]
     Route: 048
  4. MOTRIN [Suspect]
     Indication: PYREXIA
     Route: 048
  5. TYLENOL (CAPLET) [Suspect]
     Route: 048
  6. TYLENOL (CAPLET) [Suspect]
     Indication: PYREXIA
     Route: 048

REACTIONS (2)
  - DIZZINESS [None]
  - PRODUCT QUALITY ISSUE [None]
